FAERS Safety Report 5489584-2 (Version None)
Quarter: 2007Q4

REPORT INFORMATION
  Report Type: 
  Country: None (occurrence: None)
  Receive Date: 20071009
  Receipt Date: 20070706
  Transmission Date: 20080405
  Serious: Yes (Other)
  Sender: FDA-Public Use
  Company Number: PHEH2006US06679

PATIENT
  Age: 65 Year
  Sex: Female

DRUGS (5)
  1. COMBIPATCH [Suspect]
     Indication: HORMONE REPLACEMENT THERAPY
     Dosage: TRANSDERMAL
     Route: 062
  2. ESTRADERM [Suspect]
  3. PROVERA [Suspect]
  4. MEDROXYPROGESTERONE [Suspect]
  5. CLIMARA [Suspect]

REACTIONS (4)
  - ARTHRITIS [None]
  - BREAST CANCER [None]
  - MAMMOGRAM ABNORMAL [None]
  - MASTECTOMY [None]
